FAERS Safety Report 14471483 (Version 1)
Quarter: 2018Q1

REPORT INFORMATION
  Report Type: Spontaneous
  Country: GR (occurrence: GR)
  Receive Date: 20180131
  Receipt Date: 20180131
  Transmission Date: 20180509
  Serious: Yes (Other)
  Sender: FDA-Public Use
  Company Number: GR-INCYTE CORPORATION-2018IN000567

PATIENT

DRUGS (2)
  1. JAKAVI [Suspect]
     Active Substance: RUXOLITINIB
     Indication: MYELOFIBROSIS
     Dosage: 15 MG, BID
     Route: 065
  2. VIDAZA [Suspect]
     Active Substance: AZACITIDINE
     Indication: MYELOFIBROSIS
     Route: 065

REACTIONS (2)
  - Off label use [Unknown]
  - Acute myeloid leukaemia [Unknown]
